FAERS Safety Report 4750239-0 (Version None)
Quarter: 2005Q3

REPORT INFORMATION
  Report Type: 
  Country: None (occurrence: None)
  Receive Date: 20050823
  Receipt Date: 20050404
  Transmission Date: 20060218
  Serious: Yes (Hospitalization)
  Sender: FDA-Public Use
  Company Number: US-BRISTOL-MYERS SQUIBB COMPANY-12921607

PATIENT
  Age: 63 Year
  Sex: Male
  Weight: 56 kg

DRUGS (9)
  1. CETUXIMAB [Suspect]
     Indication: NON-SMALL CELL LUNG CANCER
     Route: 042
     Dates: start: 20050331, end: 20050331
  2. CARBOPLATIN [Suspect]
     Indication: NON-SMALL CELL LUNG CANCER
     Route: 042
     Dates: start: 20050331, end: 20050331
  3. DOCETAXEL [Suspect]
     Indication: NON-SMALL CELL LUNG CANCER
     Route: 042
     Dates: start: 20050331, end: 20050331
  4. DOCUSATE SODIUM [Concomitant]
     Indication: CONSTIPATION
     Route: 048
     Dates: start: 20050310
  5. ONDANSETRON [Concomitant]
     Indication: NAUSEA
     Route: 048
     Dates: start: 20050217
  6. PREDNISONE [Concomitant]
     Indication: FATIGUE
     Route: 048
     Dates: start: 20050224
  7. LANSOPRAZOLE [Concomitant]
     Indication: GASTROOESOPHAGEAL REFLUX DISEASE
     Route: 048
     Dates: start: 20050217
  8. DEXAMETHASONE [Concomitant]
     Indication: PREMEDICATION
     Dosage: ADMINISTERED X 3 DAYS FOR TAXOTERE PREMEDICATION.
     Route: 048
     Dates: start: 20050216
  9. NEULASTA [Concomitant]
     Indication: NEUTROPENIA
     Route: 058
     Dates: start: 20050401

REACTIONS (1)
  - DEHYDRATION [None]
